FAERS Safety Report 16244317 (Version 1)
Quarter: 2019Q2

REPORT INFORMATION
  Report Type: Report from Study
  Country: US (occurrence: US)
  Receive Date: 20190426
  Receipt Date: 20190426
  Transmission Date: 20190711
  Serious: Yes (Hospitalization)
  Sender: FDA-Public Use
  Company Number: US-JNJFOC-20190436089

PATIENT
  Age: 96 Year
  Sex: Female

DRUGS (11)
  1. IMBRUVICA [Suspect]
     Active Substance: IBRUTINIB
     Indication: ACUTE LYMPHOCYTIC LEUKAEMIA
     Route: 048
     Dates: start: 20181002
  2. LOPERAMIDE [Concomitant]
     Active Substance: LOPERAMIDE
  3. LIDOCAINE. [Concomitant]
     Active Substance: LIDOCAINE
  4. HUMALOG [Concomitant]
     Active Substance: INSULIN LISPRO
  5. BACTRIM [Concomitant]
     Active Substance: SULFAMETHOXAZOLE\TRIMETHOPRIM
  6. AMOXICILLIN. [Concomitant]
     Active Substance: AMOXICILLIN
  7. SYNTHROID [Concomitant]
     Active Substance: LEVOTHYROXINE SODIUM
  8. GABAPENTIN. [Concomitant]
     Active Substance: GABAPENTIN
  9. GENTAMICIN. [Concomitant]
     Active Substance: GENTAMICIN
  10. METOPROLOL. [Concomitant]
     Active Substance: METOPROLOL
  11. MUPIROCIN. [Concomitant]
     Active Substance: MUPIROCIN

REACTIONS (3)
  - Gait disturbance [Not Recovered/Not Resolved]
  - Hypoaesthesia [Not Recovered/Not Resolved]
  - Ear pain [Not Recovered/Not Resolved]

NARRATIVE: CASE EVENT DATE: 20190411
